FAERS Safety Report 17589665 (Version 1)
Quarter: 2020Q1

REPORT INFORMATION
  Report Type: Spontaneous
  Country: US (occurrence: US)
  Receive Date: 20200327
  Receipt Date: 20200327
  Transmission Date: 20200409
  Serious: No
  Sender: FDA-Public Use
  Company Number: US-ALLERGAN-1930912US

PATIENT
  Age: 52 Year
  Sex: Female
  Weight: 54.42 kg

DRUGS (1)
  1. LATISSE [Suspect]
     Active Substance: BIMATOPROST
     Indication: GROWTH OF EYELASHES
     Dosage: 2 GTT, QHS
     Route: 061
     Dates: start: 2019, end: 2019

REACTIONS (4)
  - Blepharitis [Recovered/Resolved]
  - Eye swelling [Recovered/Resolved]
  - Eyelid margin crusting [Recovered/Resolved]
  - Ocular hyperaemia [Unknown]

NARRATIVE: CASE EVENT DATE: 201905
